FAERS Safety Report 23550440 (Version 1)
Quarter: 2024Q1

REPORT INFORMATION
  Report Type: Spontaneous
  Country: US (occurrence: None)
  Receive Date: 20240221
  Receipt Date: 20240221
  Transmission Date: 20240410
  Serious: Yes (Death)
  Sender: FDA-Public Use
  Company Number: None

PATIENT
  Age: 82 Year
  Sex: Male

DRUGS (1)
  1. RETACRIT [Suspect]
     Active Substance: EPOETIN ALFA-EPBX
     Indication: Anaemia
     Dosage: OTHER STRENGTH : 10,000U/ML;?OTHER QUANTITY : 10,000 UNITS;?FREQUENCY : 3 TIMES A WEEK;?

REACTIONS (1)
  - Death [None]

NARRATIVE: CASE EVENT DATE: 20240220
